FAERS Safety Report 9105326 (Version 1)
Quarter: 2013Q1

REPORT INFORMATION
  Report Type: Report from Study
  Country: BE (occurrence: BE)
  Receive Date: 20130220
  Receipt Date: 20130220
  Transmission Date: 20140127
  Serious: Yes (Hospitalization)
  Sender: FDA-Public Use
  Company Number: BE-BRISTOL-MYERS SQUIBB COMPANY-17400409

PATIENT
  Age: 33 Year
  Sex: Male
  Weight: 88 kg

DRUGS (5)
  1. ATAZANAVIR [Suspect]
     Indication: HIV INFECTION
     Route: 048
     Dates: start: 20100812, end: 20130205
  2. RITONAVIR [Suspect]
     Indication: HIV INFECTION
     Route: 048
     Dates: start: 20100812, end: 20130205
  3. TRUVADA [Suspect]
     Indication: HIV INFECTION
     Route: 048
     Dates: start: 20100812, end: 20130205
  4. VENLAFAXINE HYDROCHLORIDE [Concomitant]
     Dates: start: 20120705
  5. XANAX [Concomitant]
     Dates: start: 20120827

REACTIONS (2)
  - Suicide attempt [Unknown]
  - Depression [Unknown]
